FAERS Safety Report 5649031-4 (Version None)
Quarter: 2008Q1

REPORT INFORMATION
  Report Type: 
  Country: None (occurrence: None)
  Receive Date: 20080131
  Receipt Date: 20071215
  Transmission Date: 20080703
  Serious: No
  Sender: FDA-Public Use
  Company Number: US200709003192

PATIENT
  Age: 64 Year
  Sex: Male
  Weight: 94.8 kg

DRUGS (10)
  1. BYETTA [Suspect]
     Indication: TYPE 2 DIABETES MELLITUS
     Dosage: 5 UG, 2/D, SUBCUTANEOUS ; 10 UG, 2/D, SUBCUTANEOUS
     Route: 058
     Dates: start: 20070101, end: 20070101
  2. BYETTA [Suspect]
     Indication: TYPE 2 DIABETES MELLITUS
     Dosage: 5 UG, 2/D, SUBCUTANEOUS ; 10 UG, 2/D, SUBCUTANEOUS
     Route: 058
     Dates: start: 20070101, end: 20070101
  3. BYETTA [Suspect]
     Dosage: 10 UG, 2/D, SUBCUTANEOUS
     Route: 058
     Dates: start: 20070101
  4. METFORMIN HCL [Concomitant]
  5. ACTOS [Concomitant]
  6. INSULIN (INSULIN) [Concomitant]
  7. LISINOPRIL /USA/ (LISINOPRIL) [Concomitant]
  8. CITALOPRAM HYDROBROMIDE [Concomitant]
  9. LIPITOR [Concomitant]
  10. ASPIRIN [Concomitant]

REACTIONS (2)
  - BLOOD GLUCOSE INCREASED [None]
  - INJECTION SITE EXTRAVASATION [None]
